FAERS Safety Report 9918713 (Version 1)
Quarter: 2014Q1

REPORT INFORMATION
  Report Type: Report from Study
  Country: US (occurrence: US)
  Receive Date: 20140224
  Receipt Date: 20140224
  Transmission Date: 20141002
  Serious: Yes (Other)
  Sender: FDA-Public Use
  Company Number: US-ROCHE-1333078

PATIENT
  Sex: Male

DRUGS (3)
  1. LUCENTIS [Suspect]
     Indication: AGE-RELATED MACULAR DEGENERATION
     Route: 050
  2. AVASTIN [Suspect]
     Indication: AGE-RELATED MACULAR DEGENERATION
     Route: 065
  3. LUMIGAN [Concomitant]
     Dosage: EVERY NIGHT AT BED TIME IN LEFT EYE (OS)
     Route: 065

REACTIONS (6)
  - Eye irritation [Unknown]
  - Blindness transient [Unknown]
  - Vitreous floaters [Unknown]
  - Glaucoma [Unknown]
  - Carotid artery occlusion [Unknown]
  - Visual impairment [Unknown]
